FAERS Safety Report 8926105 (Version 3)
Quarter: 2013Q2

REPORT INFORMATION
  Report Type: Spontaneous
  Country: TR (occurrence: TR)
  Receive Date: 20121127
  Receipt Date: 20130530
  Transmission Date: 20140414
  Serious: Yes (Hospitalization, Other)
  Sender: FDA-Public Use
  Company Number: TR-AMGEN-TURSP2012075647

PATIENT
  Age: 58 Year
  Sex: Female
  Weight: 72 kg

DRUGS (3)
  1. ENBREL [Suspect]
     Indication: RHEUMATOID ARTHRITIS
     Dosage: 50 MG, WEEKLY
     Route: 058
     Dates: start: 20110517, end: 20121105
  2. ENBREL [Suspect]
     Dosage: 50 MG, WEEKLY
     Route: 058
  3. EMTHEXATE                          /00113801/ [Concomitant]
     Indication: RHEUMATOID ARTHRITIS
     Dosage: 3 TABLETS ONCE PER WEEK
     Route: 048
     Dates: start: 1987, end: 20121022

REACTIONS (6)
  - Hepatic enzyme increased [Unknown]
  - Hyperlipidaemia [Unknown]
  - Pain [Not Recovered/Not Resolved]
  - Weight increased [Not Recovered/Not Resolved]
  - Gastric haemorrhage [Recovering/Resolving]
  - Stress [Unknown]
